FAERS Safety Report 9995018 (Version 1)
Quarter: 2014Q1

REPORT INFORMATION
  Report Type: Spontaneous
  Country: GB (occurrence: GB)
  Receive Date: 20140311
  Receipt Date: 20140311
  Transmission Date: 20141002
  Serious: Yes (Death, Other)
  Sender: FDA-Public Use
  Company Number: GB-TEVA-466523ISR

PATIENT
  Age: 68 Year
  Sex: Female
  Weight: 120 kg

DRUGS (11)
  1. LEFLUNOMIDE [Suspect]
     Indication: RHEUMATOID ARTHRITIS
     Route: 048
     Dates: start: 20130816, end: 20131104
  2. METHOTREXATE [Suspect]
     Indication: RHEUMATOID ARTHRITIS
     Dosage: WAS CHANGED FROM METHOTREXATE AND SULPHASALAZINE TO LEFLUNOMIDE
     Dates: end: 201308
  3. SULPHASALAZINE [Suspect]
     Indication: RHEUMATOID ARTHRITIS
     Dosage: WAS CHANGED FROM METHOTREXATE AND SULPHASALAZINE TO LEFLUNOMIDE
     Dates: end: 201308
  4. ASPIRIN [Concomitant]
  5. ATORVASTATIN [Concomitant]
  6. BENDROFLUAZIDE [Concomitant]
  7. FOLIC ACID [Concomitant]
  8. FUROSEMIDE [Concomitant]
  9. LANSOPRAZOLE [Concomitant]
  10. LOSARTAN [Concomitant]
  11. TILDIEM LA [Concomitant]

REACTIONS (2)
  - Pneumonitis [Fatal]
  - Respiratory failure [Unknown]
